FAERS Safety Report 9286563 (Version 2)
Quarter: 2013Q2

REPORT INFORMATION
  Report Type: Spontaneous
  Country: US (occurrence: US)
  Receive Date: 20130513
  Receipt Date: 20130611
  Transmission Date: 20140414
  Serious: No
  Sender: FDA-Public Use
  Company Number: US-ASTRAZENECA-2013SE31005

PATIENT
  Age: 552 Month
  Sex: Female
  Weight: 60.3 kg

DRUGS (2)
  1. PULMICORT FLEXHALER [Suspect]
     Indication: ASTHMA
     Dosage: 2 PUFFS DAILLY, 180 UG, TOTAL DAILY DOSE 360 UG
     Route: 055
     Dates: start: 201301
  2. DEXILANT [Concomitant]
     Indication: GASTROOESOPHAGEAL REFLUX DISEASE

REACTIONS (4)
  - Condition aggravated [Recovered/Resolved]
  - Dyspnoea exertional [Recovered/Resolved]
  - Nocturnal dyspnoea [Recovered/Resolved]
  - Intentional drug misuse [Unknown]
